FAERS Safety Report 5899669-4 (Version None)
Quarter: 2008Q3

REPORT INFORMATION
  Report Type: 
  Country: None (occurrence: None)
  Receive Date: 20080919
  Receipt Date: 20080828
  Transmission Date: 20090109
  Serious: No
  Sender: FDA-Public Use
  Company Number: US-WYE-H05812608

PATIENT
  Age: 45 Year
  Sex: Male
  Weight: 72.64 kg

DRUGS (3)
  1. PRISTIQ [Suspect]
     Indication: DEPRESSION
     Dosage: 50 MG 1X PER 1 DAY, ORAL
     Route: 048
     Dates: start: 20080820
  2. ADDERALL (AMFETAMINE ASPARTATE/AMFETAMINE SULFATE/DEXAMFETAMIN SACCHAR [Concomitant]
  3. PAXIL [Concomitant]

REACTIONS (3)
  - DIARRHOEA [None]
  - HEADACHE [None]
  - VISION BLURRED [None]
